FAERS Safety Report 6894216-2 (Version None)
Quarter: 2010Q3

REPORT INFORMATION
  Report Type: 
  Country: None (occurrence: None)
  Receive Date: 20100802
  Receipt Date: 20100720
  Transmission Date: 20110219
  Serious: Yes (Other)
  Sender: FDA-Public Use
  Company Number: PHBS2007DK13658

PATIENT
  Age: 29 Year
  Sex: Male

DRUGS (1)
  1. VOLTAREN [Suspect]
     Indication: INJURY
     Dosage: UNK
     Route: 061
     Dates: start: 20070701, end: 20070801

REACTIONS (1)
  - PROCTITIS HAEMORRHAGIC [None]
